FAERS Safety Report 14467727 (Version 2)
Quarter: 2018Q2

REPORT INFORMATION
  Report Type: Spontaneous
  Country: US (occurrence: US)
  Receive Date: 20180131
  Receipt Date: 20180422
  Transmission Date: 20180711
  Serious: Yes (Other)
  Sender: FDA-Public Use
  Company Number: US-APOTEX-2018AP005739

PATIENT
  Age: 69 Year
  Sex: Male

DRUGS (3)
  1. CLOPIDOGREL [Suspect]
     Active Substance: CLOPIDOGREL BISULFATE
     Indication: ANTIPLATELET THERAPY
     Dosage: 75 MG, QD
     Route: 065
  2. WARFIN [Concomitant]
     Active Substance: WARFARIN
     Indication: PULMONARY EMBOLISM
     Dosage: INR 2
     Route: 065
  3. WARFIN [Concomitant]
     Active Substance: WARFARIN
     Indication: INTRACRANIAL VENOUS SINUS THROMBOSIS

REACTIONS (2)
  - Cerebral haemorrhage [Recovered/Resolved]
  - Headache [Recovered/Resolved]
